FAERS Safety Report 6284261-2 (Version None)
Quarter: 2009Q3

REPORT INFORMATION
  Report Type: 
  Country: None (occurrence: None)
  Receive Date: 20090722
  Receipt Date: 20090710
  Transmission Date: 20100115
  Serious: Yes (Life-Threatening)
  Sender: FDA-Public Use
  Company Number: 200907AGG00883

PATIENT
  Age: 56 Year
  Sex: Male

DRUGS (3)
  1. TIROFIBAN (TIROFIBAN HYDROCHLORIDE) [Suspect]
     Indication: ACUTE MYOCARDIAL INFARCTION
     Dates: start: 20090630, end: 20090701
  2. ENOXAPARIN SODIUM [Concomitant]
  3. ASPIRIN [Concomitant]

REACTIONS (3)
  - HAEMOLYSIS [None]
  - LIVER FUNCTION TEST ABNORMAL [None]
  - THROMBOCYTOPENIA [None]
